FAERS Safety Report 10432713 (Version 5)
Quarter: 2015Q3

REPORT INFORMATION
  Report Type: Report from Study
  Country: JP (occurrence: JP)
  Receive Date: 20140905
  Receipt Date: 20150903
  Transmission Date: 20151125
  Serious: Yes (Other)
  Sender: FDA-Public Use
  Company Number: JP-JNJFOC-20140901712

PATIENT
  Age: 74 Year
  Sex: Female
  Weight: 48 kg

DRUGS (14)
  1. KAKKONTOU [Concomitant]
     Active Substance: HERBALS
     Route: 048
     Dates: start: 20140318, end: 20140327
  2. RIBAVIRIN. [Suspect]
     Active Substance: RIBAVIRIN
     Indication: CHRONIC HEPATITIS C
     Route: 048
     Dates: start: 20140715, end: 20140813
  3. RIBAVIRIN. [Suspect]
     Active Substance: RIBAVIRIN
     Indication: CHRONIC HEPATITIS C
     Route: 048
     Dates: start: 20140513, end: 20140714
  4. RIBAVIRIN. [Suspect]
     Active Substance: RIBAVIRIN
     Indication: CHRONIC HEPATITIS C
     Route: 048
     Dates: start: 20140305, end: 20140421
  5. PERSANTIN [Concomitant]
     Active Substance: DIPYRIDAMOLE
     Route: 048
     Dates: end: 20140306
  6. DEPAS [Concomitant]
     Active Substance: ETIZOLAM
     Route: 048
     Dates: end: 20140306
  7. GENINAX [Concomitant]
     Active Substance: GARENOXACIN MESYLATE
     Route: 048
     Dates: end: 20140315
  8. ALOSENN [Concomitant]
     Active Substance: SENNA LEAF
     Route: 048
     Dates: end: 20140306
  9. MUCOSTA [Concomitant]
     Active Substance: REBAMIPIDE
     Indication: PROPHYLAXIS
     Route: 048
     Dates: start: 20140305, end: 20140311
  10. RIBAVIRIN. [Suspect]
     Active Substance: RIBAVIRIN
     Indication: CHRONIC HEPATITIS C
     Route: 048
     Dates: start: 20140422, end: 20140512
  11. SOVRIAD [Suspect]
     Active Substance: SIMEPREVIR
     Indication: CHRONIC HEPATITIS C
     Route: 048
     Dates: start: 20140305, end: 20140520
  12. PEGINTRON [Suspect]
     Active Substance: PEGINTERFERON ALFA-2B
     Indication: CHRONIC HEPATITIS C
     Route: 058
     Dates: start: 20140305, end: 20140812
  13. URSO [Concomitant]
     Active Substance: URSODIOL
     Indication: CHRONIC HEPATITIS C
     Route: 048
     Dates: end: 20140306
  14. RESTAMIN [Concomitant]
     Active Substance: DIPHENHYDRAMINE
     Indication: ECZEMA
     Route: 061
     Dates: start: 20140415, end: 20140513

REACTIONS (4)
  - Anaemia [Recovering/Resolving]
  - Pyrexia [Recovered/Resolved]
  - Pruritus generalised [Recovering/Resolving]
  - Platelet count decreased [Recovering/Resolving]

NARRATIVE: CASE EVENT DATE: 20140305
